FAERS Safety Report 4890748-7 (Version None)
Quarter: 2006Q1

REPORT INFORMATION
  Report Type: 
  Country: None (occurrence: None)
  Receive Date: 20060123
  Receipt Date: 20060110
  Transmission Date: 20060701
  Serious: Yes (Other)
  Sender: FDA-Public Use
  Company Number: 2005-135502-NL

PATIENT
  Age: 25 Year
  Sex: Female
  Weight: 103.4 kg

DRUGS (1)
  1. NUVARING [Suspect]
     Indication: CONTRACEPTION
     Dosage: VAGINAL, 3 WEEKS IN/ 1 WEEK OUT
     Route: 067
     Dates: start: 20050101

REACTIONS (4)
  - CERVICAL DYSPLASIA [None]
  - CERVICITIS [None]
  - COITAL BLEEDING [None]
  - PELVIC INFLAMMATORY DISEASE [None]
